FAERS Safety Report 7991522-5 (Version None)
Quarter: 2011Q4

REPORT INFORMATION
  Report Type: 
  Country: None (occurrence: None)
  Receive Date: 20111219
  Receipt Date: 20111216
  Transmission Date: 20120403
  Serious: Yes (Death)
  Sender: FDA-Public Use
  Company Number: AU-B.I. PHARMACEUTICALS,INC./RIDGEFIELD-2011-AU-02497AU

PATIENT
  Sex: Male

DRUGS (6)
  1. VALIUM [Concomitant]
  2. DEXAMETHASONE [Concomitant]
  3. METOPROLOL [Concomitant]
  4. TRIPRIM [Concomitant]
  5. PRADAXA [Suspect]
     Indication: CEREBROVASCULAR ACCIDENT PROPHYLAXIS
     Dates: start: 20110627
  6. DIGOXIN [Concomitant]

REACTIONS (1)
  - RECTAL CANCER [None]
